FAERS Safety Report 10986635 (Version 1)
Quarter: 2015Q1

REPORT INFORMATION
  Report Type: Spontaneous
  Country: US (occurrence: None)
  Receive Date: 20150319
  Receipt Date: 20150319
  Transmission Date: 20150721
  Serious: Yes (Hospitalization)
  Sender: FDA-Public Use
  Company Number: 17131747-2015-99985

PATIENT
  Age: 31 Year
  Sex: Female

DRUGS (18)
  1. GABEPENTIN [Concomitant]
  2. CARVEDILOL. [Concomitant]
     Active Substance: CARVEDILOL
  3. LACTULOSE. [Concomitant]
     Active Substance: LACTULOSE
  4. DELFLEX [Suspect]
     Active Substance: CALCIUM CHLORIDE\DEXTROSE MONOHYDRATE\MAGNESIUM CHLORIDE\SODIUM CHLORIDE\SODIUM LACTATE
     Indication: CHRONIC KIDNEY DISEASE
     Dosage: PERITONEAL DIALYSIS
     Dates: start: 20150126
  5. LIBERTY CYCLER SET [Concomitant]
     Active Substance: DEVICE
  6. AMIODIPINE [Concomitant]
  7. HYDRALAZINE [Concomitant]
     Active Substance: HYDRALAZINE HYDROCHLORIDE
  8. CLONIDINE. [Concomitant]
     Active Substance: CLONIDINE
  9. PROAIR HFA [Concomitant]
     Active Substance: ALBUTEROL SULFATE
  10. LIBERTY CYCLER [Concomitant]
     Active Substance: DEVICE
  11. RENVELA [Concomitant]
     Active Substance: SEVELAMER CARBONATE
  12. ALBUTEROL. [Concomitant]
     Active Substance: ALBUTEROL
  13. MEN-PHOR [Concomitant]
     Active Substance: CAMPHOR (SYNTHETIC)\MENTHOL
  14. NEPHROCAPS [Concomitant]
     Active Substance: ASCORBIC ACID\BIOTIN\CYANOCOBALAMIN\FOLIC ACID\NIACIN\PANTOTHENIC ACID\PYRIDOXINE\RIBOFLAVIN\THIAMINE
  15. PANTOPRAZOLE [Concomitant]
     Active Substance: PANTOPRAZOLE SODIUM
  16. VENOFER [Concomitant]
     Active Substance: IRON SUCROSE
  17. LOSARTAN [Concomitant]
     Active Substance: LOSARTAN
  18. PHOSLO [Concomitant]
     Active Substance: CALCIUM ACETATE

REACTIONS (1)
  - Peritonitis [None]

NARRATIVE: CASE EVENT DATE: 20150126
